FAERS Safety Report 12856752 (Version 1)
Quarter: 2016Q4

REPORT INFORMATION
  Report Type: Spontaneous
  Country: US (occurrence: US)
  Receive Date: 20161017
  Receipt Date: 20161017
  Transmission Date: 20170207
  Serious: Yes (Other)
  Sender: FDA-Public Use
  Company Number: None

PATIENT
  Age: 53 Year
  Sex: Female
  Weight: 65.25 kg

DRUGS (2)
  1. MINOCYCLINE [Suspect]
     Active Substance: MINOCYCLINE\MINOCYCLINE HYDROCHLORIDE
     Indication: SKIN INFECTION
     Dosage: ?          QUANTITY:1 TABLET(S);?
     Route: 048
  2. ARMOUR THYROID [Suspect]
     Active Substance: THYROID, PORCINE
     Indication: HYPOTHYROIDISM
     Dosage: ?          OTHER STRENGTH:GR;QUANTITY:2 TABLET(S);?
     Route: 048

REACTIONS (9)
  - Skin ulcer [None]
  - Scar [None]
  - Rash [None]
  - Disease recurrence [None]
  - Product formulation issue [None]
  - Incorrect dose administered [None]
  - Pruritus [None]
  - Blister [None]
  - Skin burning sensation [None]

NARRATIVE: CASE EVENT DATE: 20161014
